FAERS Safety Report 22009581 (Version 2)
Quarter: 2023Q2

REPORT INFORMATION
  Report Type: Spontaneous
  Country: US (occurrence: US)
  Receive Date: 20230220
  Receipt Date: 20230405
  Transmission Date: 20230722
  Serious: Yes (Hospitalization)
  Sender: FDA-Public Use
  Company Number: US-BIOVITRUM-2022US14273

PATIENT
  Age: 4 Month
  Sex: Male
  Weight: 7 kg

DRUGS (12)
  1. SYNAGIS [Suspect]
     Active Substance: PALIVIZUMAB
     Indication: Double outlet right ventricle
     Dosage: 100 MG SDV/INJ PF 1 ML 1^S/50 MG SDV/INJ PF 0.5 ML 1^S
     Route: 030
     Dates: start: 20221011
  2. SYNAGIS [Suspect]
     Active Substance: PALIVIZUMAB
     Indication: Corrected transposition of great vessels
     Dosage: SYNAGIS 100 MG SDV/INJ PF 1ML 1S
     Dates: start: 20221130
  3. SYNAGIS [Suspect]
     Active Substance: PALIVIZUMAB
     Indication: Illness
     Dates: start: 202211
  4. ERYTHROMYCIN [Concomitant]
     Active Substance: ERYTHROMYCIN
     Indication: Product used for unknown indication
     Dosage: TABLET
  5. METHADONE HYDROCHLORIDE [Concomitant]
     Active Substance: METHADONE HYDROCHLORIDE
     Indication: Product used for unknown indication
     Dosage: 10 MG/ML ORAL CONC
  6. CLONIDINE HYDROCHLORIDE [Concomitant]
     Active Substance: CLONIDINE HYDROCHLORIDE
     Indication: Product used for unknown indication
     Dosage: TABLET
  7. POTASSIUM CHLORIDE [Concomitant]
     Active Substance: POTASSIUM CHLORIDE
     Indication: Product used for unknown indication
  8. SODIUM CHLORIDE [Concomitant]
     Active Substance: SODIUM CHLORIDE
     Indication: Product used for unknown indication
     Dosage: 5 PERCENT DROPS
  9. FAMOTIDINE [Concomitant]
     Active Substance: FAMOTIDINE
     Indication: Product used for unknown indication
     Dosage: TABLET
  10. LASIX [Concomitant]
     Active Substance: FUROSEMIDE
     Dosage: TABLET
  11. SPIRONOLACTONE [Concomitant]
     Active Substance: SPIRONOLACTONE
     Indication: Product used for unknown indication
     Dosage: TABLET
  12. DIURIL [CHLOROTHIAZIDE] [Concomitant]
     Indication: Product used for unknown indication
     Dosage: 250 MG/5 ML ORAL SUSPENTION

REACTIONS (2)
  - Infection [Not Recovered/Not Resolved]
  - Product dose omission issue [Unknown]

NARRATIVE: CASE EVENT DATE: 20230202
